FAERS Safety Report 8290973 (Version 3)
Quarter: 2013Q2

REPORT INFORMATION
  Report Type: Spontaneous
  Country: US (occurrence: None)
  Receive Date: 20111122
  Receipt Date: 20120703
  Transmission Date: 20140414
  Serious: No
  Sender: FDA-Public Use
  Company Number: PHEH2011US02175

PATIENT
  Age: 52 Year
  Sex: Female

DRUGS (9)
  1. GILENYA [Suspect]
     Indication: MULTIPLE SCLEROSIS
     Dosage: 0.5MG, QD, ORAL
     Route: 048
     Dates: start: 20110519
  2. SIMVASTATIN [Concomitant]
  3. LEXAPRO [Concomitant]
  4. GABAPENTIN (GABAPENTIN) [Concomitant]
  5. TOPAMAX [Concomitant]
  6. TRAZODONE HYDROCHLORIDE [Concomitant]
  7. BACLOFEN [Concomitant]
  8. ADDERALL [Concomitant]
  9. TAMSULOSIN HYDROCHLORIDE [Concomitant]

REACTIONS (6)
  - PAIN IN EXTREMITY [None]
  - VITAMIN D INCREASED [None]
  - ASTHENIA [None]
  - GAIT DISTURBANCE [None]
  - URINARY TRACT INFECTION [None]
  - ARTHRALGIA [None]
